FAERS Safety Report 15201110 (Version 4)
Quarter: 2018Q3

REPORT INFORMATION
  Report Type: Spontaneous
  Country: US (occurrence: US)
  Receive Date: 20180726
  Receipt Date: 20180827
  Transmission Date: 20181010
  Serious: Yes (Other)
  Sender: FDA-Public Use
  Company Number: US-PFIZER INC-2018295377

PATIENT
  Age: 77 Year
  Sex: Male
  Weight: 83.9 kg

DRUGS (2)
  1. IBRANCE [Suspect]
     Active Substance: PALBOCICLIB
     Dosage: 100 MG, UNK
  2. IBRANCE [Suspect]
     Active Substance: PALBOCICLIB
     Indication: BREAST CANCER
     Dosage: 125 MG, CYCLIC (FOR 21 DAYS ON 7 DAYS OFF)
     Route: 048
     Dates: start: 201804

REACTIONS (3)
  - Product use in unapproved indication [Unknown]
  - Deafness [Unknown]
  - Neutropenia [Unknown]

NARRATIVE: CASE EVENT DATE: 201804
